FAERS Safety Report 8761275 (Version 1)
Quarter: 2012Q4

REPORT INFORMATION
  Report Type: 
  Country: US (occurrence: US)
  Receive Date: 20120830
  Receipt Date: 20120830
  Transmission Date: 20130627
  Serious: Yes (Death)
  Sender: FDA-Public Use
  Company Number: US-GE HEALTHCARE MEDICAL DIAGNOSTICS-OSCN-PR-1208S-0132

PATIENT
  Sex: Male

DRUGS (3)
  1. OMNISCAN [Suspect]
     Indication: PRODUCT USED FOR UNKNOWN INDICATION
     Dates: start: 20050806, end: 20050806
  2. OMNISCAN [Suspect]
     Indication: DIAGNOSTIC PROCEDURE
     Dates: start: 20060927, end: 20060927
  3. OMNISCAN [Suspect]
     Dates: start: 20060927, end: 20060927

REACTIONS (3)
  - Nephrogenic systemic fibrosis [Fatal]
  - Fibrosis [Not Recovered/Not Resolved]
  - Joint contracture [Not Recovered/Not Resolved]
